FAERS Safety Report 5732218-X (Version None)
Quarter: 2008Q2

REPORT INFORMATION
  Report Type: 
  Country: None (occurrence: None)
  Receive Date: 20080508
  Receipt Date: 20080415
  Transmission Date: 20081010
  Serious: No
  Sender: FDA-Public Use
  Company Number: US-BOEHRINGER INGELHEIM GMBH, GERMANY-2008-BP-05929BP

PATIENT
  Sex: Female

DRUGS (3)
  1. AGGRENOX [Suspect]
  2. TOPROL-XL [Concomitant]
  3. COUMADIN [Concomitant]

REACTIONS (1)
  - ADVERSE DRUG REACTION [None]
